FAERS Safety Report 5003218-2 (Version None)
Quarter: 2006Q2

REPORT INFORMATION
  Report Type: 
  Country: None (occurrence: None)
  Receive Date: 20060510
  Receipt Date: 20060427
  Transmission Date: 20061013
  Serious: Yes (Other)
  Sender: FDA-Public Use
  Company Number: 2006057649

PATIENT
  Age: 74 Year
  Sex: Male

DRUGS (4)
  1. UNASYN [Suspect]
     Indication: PNEUMONIA
     Dosage: 3 GRAM, INTRAVENOUS
     Route: 042
     Dates: start: 20060309, end: 20060320
  2. NATEGLINIDE [Concomitant]
  3. GLUCOBAY [Concomitant]
  4. RABEPRAZOLE SODIUM [Concomitant]

REACTIONS (3)
  - DIALYSIS [None]
  - RENAL FAILURE ACUTE [None]
  - SEPSIS [None]
